FAERS Safety Report 4324904-3 (Version None)
Quarter: 2004Q1

REPORT INFORMATION
  Report Type: 
  Country: None (occurrence: None)
  Receive Date: 20040325
  Receipt Date: 20040325
  Transmission Date: 20041129
  Serious: Yes (Life-Threatening, Hospitalization)
  Sender: FDA-Public Use
  Company Number: None

PATIENT
  Age: 14 Year
  Sex: Female

DRUGS (1)
  1. DOXORUBICIN HCL [Suspect]
     Indication: BONE SARCOMA
     Dosage: 75 MG/M2 INTRAVENOUS
     Route: 042
     Dates: start: 20021211, end: 20030912

REACTIONS (2)
  - CARDIAC FAILURE [None]
  - CARDIOMYOPATHY [None]
